FAERS Safety Report 8298027-5 (Version None)
Quarter: 2012Q2

REPORT INFORMATION
  Report Type: 
  Country: None (occurrence: None)
  Receive Date: 20120419
  Receipt Date: 20120411
  Transmission Date: 20120825
  Serious: Yes (Other)
  Sender: FDA-Public Use
  Company Number: US-BAYER-2012-030177

PATIENT
  Age: 33 Year
  Sex: Female

DRUGS (1)
  1. MIRENA [Suspect]
     Indication: CONTRACEPTION
     Dosage: 20 MCG/24HR, CONT
     Route: 015
     Dates: start: 20120110, end: 20120201

REACTIONS (7)
  - HEART RATE INCREASED [None]
  - VAGINAL HAEMORRHAGE [None]
  - MOOD SWINGS [None]
  - FEELING ABNORMAL [None]
  - PELVIC PAIN [None]
  - PANIC ATTACK [None]
  - PALPITATIONS [None]
